FAERS Safety Report 9321282 (Version 1)
Quarter: 2013Q2

REPORT INFORMATION
  Report Type: Spontaneous
  Country: AT (occurrence: AT)
  Receive Date: 20130531
  Receipt Date: 20130531
  Transmission Date: 20140414
  Serious: Yes (Hospitalization)
  Sender: FDA-Public Use
  Company Number: AT-BAYER-2013-066147

PATIENT
  Age: 76 Year
  Sex: Male

DRUGS (9)
  1. AVELOX 400 MG - FILMTABLETTEN [Suspect]
     Dosage: 400 MG, UNK
     Dates: start: 20130329, end: 20130405
  2. ASPIRIN [Suspect]
  3. CLAVAMOX [Suspect]
  4. LOVENOX [Concomitant]
     Dosage: 80 MG, QD
  5. NOMEXOR [Concomitant]
     Dosage: 2.5 MG, QD
  6. THROMBO ASS [Concomitant]
     Dosage: 100 MG, QD
  7. ALNA RETARD [Concomitant]
     Dosage: 0.4 MG, QD
  8. ZANTAC [Concomitant]
     Dosage: 150 MG, BID
  9. VIBROCIL [DIMETINDENE MALEATE,PHENYLEPHRINE] [Concomitant]
     Dosage: UNK
     Route: 045

REACTIONS (12)
  - Nausea [None]
  - General physical health deterioration [None]
  - Loss of consciousness [None]
  - Vomiting [None]
  - Fall [None]
  - Bone pain [Not Recovered/Not Resolved]
  - Myalgia [Not Recovered/Not Resolved]
  - Tendon pain [Recovered/Resolved]
  - Blood creatinine decreased [None]
  - Breath sounds abnormal [None]
  - Staring [None]
  - Eye movement disorder [None]
